FAERS Safety Report 18489120 (Version 2)
Quarter: 2025Q3

REPORT INFORMATION
  Report Type: Spontaneous
  Country: EU (occurrence: EU)
  Receive Date: 20201111
  Receipt Date: 20250912
  Transmission Date: 20251021
  Serious: Yes (Hospitalization)
  Sender: AUROBINDO
  Company Number: EU-MYLANLABS-2020M1090267

PATIENT
  Age: 51 Year
  Sex: Female

DRUGS (1)
  1. RIVASTIGMINE [Suspect]
     Active Substance: RIVASTIGMINE
     Indication: Product used for unknown indication
     Route: 065

REACTIONS (4)
  - Orthostatic hypotension [Unknown]
  - Nystagmus [Unknown]
  - Diplopia [Unknown]
  - Off label use [Unknown]
